FAERS Safety Report 5102776-7 (Version None)
Quarter: 2006Q3

REPORT INFORMATION
  Report Type: 
  Country: None (occurrence: None)
  Receive Date: 20060907
  Receipt Date: 20060825
  Transmission Date: 20061208
  Serious: Yes (Hospitalization)
  Sender: FDA-Public Use
  Company Number: 2006001665

PATIENT
  Age: 80 Year
  Sex: Male

DRUGS (8)
  1. TARCEVA [Suspect]
     Indication: LUNG NEOPLASM MALIGNANT
     Dosage: 100 MG (QD), ORAL
     Route: 048
     Dates: start: 20060707, end: 20060711
  2. TARCEVA [Suspect]
     Indication: LUNG NEOPLASM MALIGNANT
     Dosage: 100 MG (QD), ORAL
     Route: 048
     Dates: start: 20060817
  3. DIAMICRON (GLICLAZIDE) [Concomitant]
  4. GLUCOPHAGE [Concomitant]
  5. SALOSPIR (ACETYLSALICYLIC ACID) [Concomitant]
  6. DILTIAZEM HYDROCHLORIDE [Concomitant]
  7. LIPITOR [Concomitant]
  8. XATRAL (ALFUZOSIN) [Concomitant]

REACTIONS (1)
  - HYPOGLYCAEMIA [None]
